FAERS Safety Report 7717670-2 (Version None)
Quarter: 2011Q3

REPORT INFORMATION
  Report Type: 
  Country: None (occurrence: None)
  Receive Date: 20110830
  Receipt Date: 20110830
  Transmission Date: 20111222
  Serious: Yes (Death, Life-Threatening, Hospitalization, Disabling, Congenital Anomaly, Other)
  Sender: FDA-Public Use
  Company Number: None

PATIENT
  Age: 62 Year
  Sex: Female
  Weight: 58.967 kg

DRUGS (1)
  1. SULFAMETHOXAZOLE AND TRIMETHOPRIM [Suspect]
     Indication: SKIN INFECTION
     Dosage: DOESN'T SAY
     Route: 048
     Dates: start: 20110825, end: 20110828

REACTIONS (6)
  - ARTHRALGIA [None]
  - PAIN IN EXTREMITY [None]
  - PAIN [None]
  - MUSCULOSKELETAL PAIN [None]
  - PYREXIA [None]
  - RASH GENERALISED [None]
